FAERS Safety Report 16763466 (Version 2)
Quarter: 2019Q4

REPORT INFORMATION
  Report Type: Spontaneous
  Country: AR (occurrence: AR)
  Receive Date: 20190902
  Receipt Date: 20191021
  Transmission Date: 20200122
  Serious: Yes (Hospitalization)
  Sender: FDA-Public Use
  Company Number: AR-PFIZER INC-2019374031

PATIENT
  Age: 73 Year
  Sex: Female

DRUGS (2)
  1. IBRANCE [Suspect]
     Active Substance: PALBOCICLIB
     Indication: BREAST CANCER METASTATIC
     Dosage: 75 MG, CYCLIC (DAILY, SCHEME 3X1)
     Dates: start: 20160518, end: 20190802
  2. LETROZOL [Concomitant]
     Active Substance: LETROZOLE
     Dosage: 1 DF, DAILY
     Dates: start: 20160518

REACTIONS (1)
  - Diverticulum [Recovering/Resolving]

NARRATIVE: CASE EVENT DATE: 20190802
